FAERS Safety Report 17558514 (Version 1)
Quarter: 2020Q1

REPORT INFORMATION
  Report Type: Report from Study
  Country: US (occurrence: US)
  Receive Date: 20200318
  Receipt Date: 20200318
  Transmission Date: 20200409
  Serious: No
  Sender: FDA-Public Use
  Company Number: NVSC2020US075234

PATIENT
  Sex: Female

DRUGS (1)
  1. COSENTYX [Suspect]
     Active Substance: SECUKINUMAB
     Indication: PSORIASIS
     Dosage: 300 MG, QW
     Route: 058
     Dates: start: 20200118

REACTIONS (8)
  - Vomiting [Unknown]
  - Traumatic lung injury [Unknown]
  - Sleep disorder [Unknown]
  - Influenza like illness [Unknown]
  - Asthenia [Unknown]
  - Ill-defined disorder [Recovering/Resolving]
  - Bacterial vaginosis [Unknown]
  - Pyrexia [Unknown]
